FAERS Safety Report 9574918 (Version 2)
Quarter: 2013Q4

REPORT INFORMATION
  Report Type: Spontaneous
  Country: JP (occurrence: JP)
  Receive Date: 20131001
  Receipt Date: 20131021
  Transmission Date: 20140711
  Serious: Yes (Hospitalization, Other)
  Sender: FDA-Public Use
  Company Number: JP-UCBSA-099015

PATIENT
  Age: 0 None
  Sex: Female
  Weight: 2.45 kg

DRUGS (8)
  1. E KEPPRA [Suspect]
     Indication: IDIOPATHIC GENERALISED EPILEPSY
     Route: 064
  2. E KEPPRA [Suspect]
     Indication: JUVENILE MYOCLONIC EPILEPSY
     Route: 064
  3. E KEPPRA [Suspect]
     Indication: IDIOPATHIC GENERALISED EPILEPSY
     Route: 064
  4. E KEPPRA [Suspect]
     Indication: JUVENILE MYOCLONIC EPILEPSY
     Route: 064
  5. E KEPPRA [Suspect]
     Indication: IDIOPATHIC GENERALISED EPILEPSY
     Route: 064
  6. E KEPPRA [Suspect]
     Indication: JUVENILE MYOCLONIC EPILEPSY
     Route: 064
  7. FOLIAMIN [Concomitant]
     Route: 064
  8. METRONIDAZOLE [Concomitant]
     Route: 064

REACTIONS (5)
  - Foetal heart rate disorder [Recovered/Resolved]
  - Hypoglycaemia neonatal [Recovered/Resolved]
  - Low birth weight baby [Recovered/Resolved]
  - Umbilical cord around neck [Recovered/Resolved]
  - Foetal exposure during pregnancy [Recovered/Resolved]
